FAERS Safety Report 10368240 (Version 1)
Quarter: 2014Q3

REPORT INFORMATION
  Report Type: Spontaneous
  Country: US (occurrence: None)
  Receive Date: 20140805
  Receipt Date: 20140805
  Transmission Date: 20150326
  Serious: Yes (Other)
  Sender: FDA-Public Use
  Company Number: IMP_07755_2014

PATIENT
  Age: 36 Year
  Sex: Male
  Weight: 115 kg

DRUGS (12)
  1. HYDROMORPHONE [Concomitant]
     Active Substance: HYDROMORPHONE
  2. CALCIUM CHLORIDE. [Concomitant]
     Active Substance: CALCIUM CHLORIDE
  3. MIDAZOLAM [Concomitant]
     Active Substance: MIDAZOLAM\MIDAZOLAM HYDROCHLORIDE
  4. DEXAMETHASONE. [Concomitant]
     Active Substance: DEXAMETHASONE
  5. SCOPOLAMINE [Concomitant]
     Active Substance: SCOPOLAMINE
  6. PROPOFOL. [Concomitant]
     Active Substance: PROPOFOL
  7. VECURONIUM [Concomitant]
     Active Substance: VECURONIUM BROMIDE
  8. SODIUM BICARBONATE. [Concomitant]
     Active Substance: SODIUM BICARBONATE
  9. DANTRIUM [Suspect]
     Active Substance: DANTROLENE SODIUM
     Indication: HYPERTHERMIA MALIGNANT
     Dosage: 240 MG RECONSTITUED AND GIVEN IN 12 DIVIDED IV BOLUSES IN SUCCESSION]
     Route: 040
  10. FENTANYL. [Concomitant]
     Active Substance: FENTANYL
  11. KETAMINE [Concomitant]
     Active Substance: KETAMINE
  12. CRYSTALLOID BOLUS [Concomitant]

REACTIONS (3)
  - Body temperature increased [None]
  - Deep vein thrombosis [None]
  - Heart rate increased [None]
